FAERS Safety Report 5066482-X (Version None)
Quarter: 2006Q3

REPORT INFORMATION
  Report Type: 
  Country: None (occurrence: None)
  Receive Date: 20060731
  Receipt Date: 20060731
  Transmission Date: 20061208
  Serious: Yes (Hospitalization)
  Sender: FDA-Public Use
  Company Number: None

PATIENT
  Age: 49 Year
  Sex: Female

DRUGS (2)
  1. PHENYTOIN [Suspect]
     Indication: CONVULSION
     Dates: start: 20060217, end: 20060218
  2. PHENOBARBITAL TAB [Concomitant]

REACTIONS (4)
  - DRUG HYPERSENSITIVITY [None]
  - ORAL PAIN [None]
  - PAIN [None]
  - RASH PRURITIC [None]
